FAERS Safety Report 10156879 (Version 1)
Quarter: 2014Q2

REPORT INFORMATION
  Report Type: Spontaneous
  Country: US (occurrence: None)
  Receive Date: 20140506
  Receipt Date: 20140506
  Transmission Date: 20141212
  Serious: No
  Sender: FDA-Public Use
  Company Number: None

PATIENT
  Age: 69 Year
  Sex: Male
  Weight: 74.84 kg

DRUGS (1)
  1. AMITIZA [Suspect]
     Indication: CONSTIPATION
     Dosage: ONE CAPSULE TWO TIMES DAILY
     Route: 048
     Dates: start: 20140429, end: 20140503

REACTIONS (5)
  - Nausea [None]
  - Headache [None]
  - Fatigue [None]
  - Abdominal pain [None]
  - Drug effect decreased [None]
